FAERS Safety Report 16220887 (Version 1)
Quarter: 2019Q2

REPORT INFORMATION
  Report Type: Spontaneous
  Country: DE (occurrence: DE)
  Receive Date: 20190421
  Receipt Date: 20190421
  Transmission Date: 20190711
  Serious: Yes (Hospitalization, Other)
  Sender: FDA-Public Use
  Company Number: PHHY2019DE033464

PATIENT
  Age: 71 Year
  Sex: Male
  Weight: 60 kg

DRUGS (17)
  1. CARBOPLATIN. [Suspect]
     Active Substance: CARBOPLATIN
     Indication: NON-SMALL CELL LUNG CANCER
     Dosage: 493.3 MG, UNK (FIRST LINE DOSE)
     Route: 065
     Dates: start: 20190115, end: 20190115
  2. METAMIZOLE [Concomitant]
     Active Substance: METAMIZOLE
     Indication: PRODUCT USED FOR UNKNOWN INDICATION
     Dosage: 2000 MG, QID
     Route: 065
  3. PALLADONE [Concomitant]
     Active Substance: HYDROMORPHONE HYDROCHLORIDE
     Indication: PRODUCT USED FOR UNKNOWN INDICATION
     Dosage: 8 MG, BID
     Route: 065
  4. PANTOPRAZOLE [Concomitant]
     Active Substance: PANTOPRAZOLE
     Indication: PRODUCT USED FOR UNKNOWN INDICATION
     Dosage: 40 MG, QD
     Route: 065
  5. N-ACETYLCYSTEINE [Concomitant]
     Active Substance: ACETYLCYSTEINE
     Indication: PRODUCT USED FOR UNKNOWN INDICATION
     Dosage: 600 MG, QD
     Route: 065
  6. HYDROMORPHONE [Concomitant]
     Active Substance: HYDROMORPHONE
     Indication: PRODUCT USED FOR UNKNOWN INDICATION
     Dosage: 1.3 MG, PRN
     Route: 065
  7. SIMVASTATIN. [Concomitant]
     Active Substance: SIMVASTATIN
     Indication: PRODUCT USED FOR UNKNOWN INDICATION
     Dosage: 20 MG, QD
     Route: 065
  8. MOVICOL [Concomitant]
     Active Substance: POLYETHYLENE GLYCOL 3350\POTASSIUM CHLORIDE\SODIUM BICARBONATE\SODIUM CHLORIDE
     Indication: PRODUCT USED FOR UNKNOWN INDICATION
     Dosage: 25 ML, QD
     Route: 065
  9. BISOPROLOL [Concomitant]
     Active Substance: BISOPROLOL
     Indication: PRODUCT USED FOR UNKNOWN INDICATION
     Dosage: 2.5 MG, QD
     Route: 065
  10. PEMBROLIZUMAB. [Suspect]
     Active Substance: PEMBROLIZUMAB
     Indication: NON-SMALL CELL LUNG CANCER
     Dosage: 200 MG, UNK (FIRST LINE DOSE)
     Route: 065
     Dates: start: 20190115, end: 20190115
  11. METFORMIN [Concomitant]
     Active Substance: METFORMIN HYDROCHLORIDE
     Indication: PRODUCT USED FOR UNKNOWN INDICATION
     Dosage: 1000 MG, QD
     Route: 065
  12. CALCIUM [Concomitant]
     Active Substance: CALCIUM
     Indication: PRODUCT USED FOR UNKNOWN INDICATION
     Dosage: 500 MG, QD
     Route: 065
  13. L-THYROX [Concomitant]
     Active Substance: LEVOTHYROXINE SODIUM
     Indication: PRODUCT USED FOR UNKNOWN INDICATION
     Dosage: 50 UG, QD
     Route: 065
  14. RAMIPRIL. [Concomitant]
     Active Substance: RAMIPRIL
     Indication: PRODUCT USED FOR UNKNOWN INDICATION
     Dosage: UNK
     Route: 065
  15. PEMETREXED DISODIUM [Suspect]
     Active Substance: PEMETREXED DISODIUM
     Indication: NON-SMALL CELL LUNG CANCER
     Dosage: 875 MG, UNK (FIRST LINE DOSE)
     Route: 042
     Dates: start: 20190115, end: 20190115
  16. CARBOPLATIN. [Concomitant]
     Active Substance: CARBOPLATIN
     Indication: NON-SMALL CELL LUNG CANCER
     Dosage: 493.3 MG, UNK
     Route: 065
  17. ACETYLSALICYLIC ACID [Concomitant]
     Active Substance: ASPIRIN
     Indication: PRODUCT USED FOR UNKNOWN INDICATION
     Dosage: 100 MG, QD
     Route: 065

REACTIONS (3)
  - Pneumonia [Recovering/Resolving]
  - Neutropenic sepsis [Recovered/Resolved]
  - Pancytopenia [Recovered/Resolved]

NARRATIVE: CASE EVENT DATE: 20190123
